FAERS Safety Report 6590350-5 (Version None)
Quarter: 2010Q1

REPORT INFORMATION
  Report Type: 
  Country: None (occurrence: None)
  Receive Date: 20100205
  Receipt Date: 20100117
  Transmission Date: 20100710
  Serious: Yes (Life-Threatening)
  Sender: FDA-Public Use
  Company Number: 1-21340583

PATIENT
  Age: 49 Year
  Sex: Male
  Weight: 95.2554 kg

DRUGS (2)
  1. FENTANYL [Suspect]
     Indication: PROCEDURAL PAIN
     Dosage: 25 MCG/HR EVERY 72 HR, TRANSDERMAL
     Route: 062
     Dates: start: 20100102, end: 20100117
  2. UNSPECIFIED ANTI-NAUSEA MEDICATION [Concomitant]

REACTIONS (4)
  - CONVULSION [None]
  - DISORIENTATION [None]
  - HALLUCINATION [None]
  - RESPIRATORY ARREST [None]
